FAERS Safety Report 21058262 (Version 1)
Quarter: 2022Q3

REPORT INFORMATION
  Report Type: Report from Study
  Country: MX (occurrence: MX)
  Receive Date: 20220708
  Receipt Date: 20220708
  Transmission Date: 20221027
  Serious: Yes (Death, Other)
  Sender: FDA-Public Use
  Company Number: MX-NOVARTISPH-NVSC2022MX155304

PATIENT
  Sex: Female
  Weight: 49 kg

DRUGS (3)
  1. SANDOSTATIN [Suspect]
     Active Substance: OCTREOTIDE ACETATE
     Indication: Colon cancer
     Dosage: UNK, (FORMULATION: SUSPENSION, STARTED FROM 6 OR 7 MONTHS AGO AND STOPPED 5 MONTHS AGO)
     Route: 030
  2. SANDOSTATIN [Suspect]
     Active Substance: OCTREOTIDE ACETATE
  3. SANDOSTATIN [Suspect]
     Active Substance: OCTREOTIDE ACETATE

REACTIONS (4)
  - Colon cancer [Fatal]
  - Metastases to liver [Unknown]
  - Metastatic neoplasm [Unknown]
  - Product use in unapproved indication [Unknown]
